FAERS Safety Report 4401967-8 (Version None)
Quarter: 2004Q3

REPORT INFORMATION
  Report Type: 
  Country: None (occurrence: None)
  Receive Date: 20040714
  Receipt Date: 20040623
  Transmission Date: 20050211
  Serious: Yes (Hospitalization, Other)
  Sender: FDA-Public Use
  Company Number: USA040670987

PATIENT
  Age: 40 Year
  Sex: Male

DRUGS (4)
  1. HUMALOG [Suspect]
     Indication: DIABETES MELLITUS
     Dates: start: 20031226
  2. HUMULIN N [Suspect]
     Indication: DIABETES MELLITUS
  3. HUMULIN-HUMAN INSULIN (RDNA): 30% REGULAR, 70% NPH (H [Suspect]
     Indication: DIABETES MELLITUS
     Dates: start: 20020101, end: 20030312
  4. HUMULIN R [Suspect]
     Indication: DIABETES MELLITUS
     Dates: end: 20031226

REACTIONS (5)
  - BLINDNESS [None]
  - HYPERTENSION [None]
  - PHARMACEUTICAL PRODUCT COMPLAINT [None]
  - RENAL FAILURE [None]
  - RENAL TRANSPLANT [None]
